FAERS Safety Report 7757932-6 (Version None)
Quarter: 2011Q3

REPORT INFORMATION
  Report Type: 
  Country: None (occurrence: None)
  Receive Date: 20110919
  Receipt Date: 20110908
  Transmission Date: 20111222
  Serious: Yes (Hospitalization)
  Sender: FDA-Public Use
  Company Number: IL-AMGEN-ISRSP2011046852

PATIENT
  Age: 72 Year
  Sex: Female

DRUGS (9)
  1. RAMIPRIL [Concomitant]
     Dosage: UNK
  2. FUSID                              /00032601/ [Concomitant]
     Dosage: UNK
  3. COLCHICINE [Concomitant]
     Dosage: UNK
  4. REPAGLINIDE [Concomitant]
     Dosage: UNK
  5. PREDNISONE [Concomitant]
     Dosage: UNK
  6. LOSEC                              /00661201/ [Concomitant]
     Dosage: UNK
  7. LYRICA [Concomitant]
     Dosage: UNK
  8. COUMADIN [Concomitant]
     Dosage: UNK
  9. ENBREL [Suspect]
     Indication: RHEUMATOID ARTHRITIS
     Dosage: UNK
     Dates: start: 20101213

REACTIONS (2)
  - PERIPHERAL ISCHAEMIA [None]
  - CARDIAC FAILURE [None]
